FAERS Safety Report 18329496 (Version 2)
Quarter: 2021Q4

REPORT INFORMATION
  Report Type: Spontaneous
  Country: US (occurrence: US)
  Receive Date: 20200930
  Receipt Date: 20211004
  Transmission Date: 20220303
  Serious: Yes (Other)
  Sender: FDA-Public Use
  Company Number: US-SAARTEMIS-SAC202009250550

PATIENT
  Age: 43 Year
  Sex: Male

DRUGS (1)
  1. ZANTAC [Suspect]
     Active Substance: RANITIDINE HYDROCHLORIDE
     Indication: Dyspepsia
     Dosage: UNK, QD
     Dates: start: 198501, end: 200203

REACTIONS (3)
  - Gastric cancer stage IV [Unknown]
  - Oesophageal carcinoma [Unknown]
  - Carcinoid tumour of the gastrointestinal tract [Unknown]

NARRATIVE: CASE EVENT DATE: 20020301
